FAERS Safety Report 7403233-5 (Version None)
Quarter: 2011Q2

REPORT INFORMATION
  Report Type: 
  Country: None (occurrence: None)
  Receive Date: 20110408
  Receipt Date: 20110210
  Transmission Date: 20111010
  Serious: Yes (Hospitalization)
  Sender: FDA-Public Use
  Company Number: MY-BAYER-2011-013761

PATIENT
  Age: 62 Year
  Sex: Male
  Weight: 63 kg

DRUGS (3)
  1. SORAFENIB (RAF KINASE INHIBITOR) [Suspect]
     Indication: HEPATIC NEOPLASM MALIGNANT
     Dosage: 400 MG, BID
     Route: 048
     Dates: start: 20101228, end: 20110111
  2. OMEPRAZOLE [Concomitant]
     Indication: PROPHYLAXIS
     Dosage: 20 MG, TID
     Dates: start: 20110104
  3. LOPERAMIDE [Concomitant]
     Indication: FREQUENT BOWEL MOVEMENTS
     Dosage: 2-4 MG, PRN
     Dates: start: 20110104

REACTIONS (1)
  - VARICES OESOPHAGEAL [None]
